FAERS Safety Report 9763888 (Version 1)
Quarter: 2013Q4

REPORT INFORMATION
  Report Type: Spontaneous
  Country: US (occurrence: US)
  Receive Date: 20131216
  Receipt Date: 20131216
  Transmission Date: 20140711
  Serious: No
  Sender: FDA-Public Use
  Company Number: US-BIOGENIDEC-2013BI116227

PATIENT
  Age: 52 Year
  Sex: Female

DRUGS (16)
  1. TECFIDERA [Suspect]
     Indication: MULTIPLE SCLEROSIS
     Route: 048
     Dates: start: 20131116
  2. BACLOFEN [Concomitant]
  3. BENADRYL [Concomitant]
  4. BETHANECHOL CHLORIDE [Concomitant]
  5. LISINOPRIL [Concomitant]
  6. HYDROCODONE-ACETAMINOPHEN [Concomitant]
  7. MAGNESIUM [Concomitant]
  8. NEURONTIN [Concomitant]
  9. NABUMETONE [Concomitant]
  10. RED YEAST RICE [Concomitant]
  11. PROZAC [Concomitant]
  12. SMOOTHLAX [Concomitant]
  13. TRAMADOL [Concomitant]
  14. ROPINIROLE [Concomitant]
  15. VIT B COMPLEX [Concomitant]
  16. VIT D [Concomitant]

REACTIONS (3)
  - Emotional disorder [Recovered/Resolved]
  - Crying [Recovered/Resolved]
  - Flushing [Recovered/Resolved]
